FAERS Safety Report 12463557 (Version 1)
Quarter: 2016Q2

REPORT INFORMATION
  Report Type: Spontaneous
  Country: US (occurrence: None)
  Receive Date: 20160613
  Receipt Date: 20160613
  Transmission Date: 20160815
  Serious: Yes (Disabling)
  Sender: FDA-Public Use
  Company Number: None

PATIENT
  Age: 25 Year
  Sex: Male
  Weight: 83.92 kg

DRUGS (1)
  1. PROPECIA [Suspect]
     Active Substance: FINASTERIDE
     Indication: ALOPECIA
     Route: 048

REACTIONS (6)
  - Fatigue [None]
  - Groin pain [None]
  - Insomnia [None]
  - Depressed level of consciousness [None]
  - Chills [None]
  - Anxiety [None]

NARRATIVE: CASE EVENT DATE: 20160520
